FAERS Safety Report 4930666-9 (Version None)
Quarter: 2006Q1

REPORT INFORMATION
  Report Type: 
  Country: None (occurrence: None)
  Receive Date: 20060227
  Receipt Date: 20060216
  Transmission Date: 20060701
  Serious: Yes (Other)
  Sender: FDA-Public Use
  Company Number: 2006023930

PATIENT
  Age: 8 Year
  Sex: Male
  Weight: 29.4838 kg

DRUGS (5)
  1. BENADRYL [Suspect]
     Indication: PRURITUS
     Dosage: 2 TABLETS ONCE ORAL
     Route: 048
     Dates: start: 20060214, end: 20060214
  2. MULTIVITAMINS (ASCORBIC ACID, ERGOCALCERIFOL, FOLIC ACID, NICOTINAMIDE [Concomitant]
  3. LORATADINE [Concomitant]
  4. FLUTICASONE PROPIONATE [Concomitant]
  5. MONTELUKAST SODIUM [Concomitant]

REACTIONS (4)
  - NAUSEA [None]
  - PALLOR [None]
  - PHARYNGOLARYNGEAL PAIN [None]
  - SYNCOPE [None]
